FAERS Safety Report 6303641-X (Version None)
Quarter: 2009Q3

REPORT INFORMATION
  Report Type: 
  Country: None (occurrence: None)
  Receive Date: 20090807
  Receipt Date: 20090807
  Transmission Date: 20100115
  Serious: Yes (Other)
  Sender: FDA-Public Use
  Company Number: None

PATIENT
  Age: 38 Year
  Sex: Female
  Weight: 102.0593 kg

DRUGS (2)
  1. EXCEDRIN EXTRA STRENGTH BAYER [Suspect]
     Indication: HEADACHE
     Dosage: 2 CAPLETS EVERY 6 HRS PO
     Route: 048
     Dates: start: 20090805, end: 20090805
  2. EXCEDRIN (MIGRAINE) [Suspect]
     Indication: MIGRAINE
     Dosage: 2 CAPLETS DAILY PO
     Route: 048

REACTIONS (8)
  - ABDOMINAL PAIN [None]
  - DRUG INEFFECTIVE [None]
  - FEELING JITTERY [None]
  - GASTRIC DISORDER [None]
  - MALAISE [None]
  - MIGRAINE [None]
  - NAUSEA [None]
  - OVERDOSE [None]
